FAERS Safety Report 11357731 (Version 1)
Quarter: 2015Q3

REPORT INFORMATION
  Report Type: Spontaneous
  Country: US (occurrence: US)
  Receive Date: 20150803
  Receipt Date: 20150803
  Transmission Date: 20151125
  Serious: No
  Sender: FDA-Public Use
  Company Number: US-ELI_LILLY_AND_COMPANY-US201203004646

PATIENT
  Age: 58 Year
  Sex: Female

DRUGS (1)
  1. STRATTERA [Suspect]
     Active Substance: ATOMOXETINE HYDROCHLORIDE
     Indication: DISTURBANCE IN ATTENTION
     Dosage: 40 MG, QD
     Dates: start: 20120311, end: 20120312

REACTIONS (1)
  - Tachyphrenia [Unknown]

NARRATIVE: CASE EVENT DATE: 20120311
